FAERS Safety Report 4873862-1 (Version None)
Quarter: 2006Q1

REPORT INFORMATION
  Report Type: 
  Country: None (occurrence: None)
  Receive Date: 20060104
  Receipt Date: 20051223
  Transmission Date: 20060701
  Serious: Yes (Other)
  Sender: FDA-Public Use
  Company Number: 006337

PATIENT
  Sex: Female

DRUGS (6)
  1. MEDROXYPROGESTERONE ACETATE [Suspect]
     Dosage: ORAL
     Route: 048
     Dates: start: 19930101, end: 19970123
  2. MEDROXYPROGESTERONE ACETATE [Suspect]
     Dosage: ORAL
     Route: 048
     Dates: start: 19981007, end: 20001001
  3. MEDROXYPROGESTERONE ACETATE [Suspect]
     Dosage: ORAL
     Route: 048
     Dates: start: 19981007, end: 20001001
  4. PROVERA [Suspect]
     Dosage: ORAL
     Route: 048
     Dates: start: 19930101, end: 19970123
  5. CYCRIN [Concomitant]
  6. PREMPRO [Suspect]
     Dosage: ORAL
     Route: 048
     Dates: start: 19970731, end: 19981006

REACTIONS (1)
  - BREAST CANCER FEMALE [None]
